FAERS Safety Report 18360968 (Version 2)
Quarter: 2020Q4

REPORT INFORMATION
  Report Type: Spontaneous
  Country: US (occurrence: US)
  Receive Date: 20201008
  Receipt Date: 20201014
  Transmission Date: 20210114
  Serious: Yes (Death, Other)
  Sender: FDA-Public Use
  Company Number: US-PFIZER INC-2020384751

PATIENT
  Age: 39 Year
  Sex: Female

DRUGS (2)
  1. VALIUM [Suspect]
     Active Substance: DIAZEPAM
     Indication: ANXIETY
     Dosage: UNK UNK, 2X/DAY (5 MG OR 7.5 MG TWICE A DAY)
  2. VALIUM [Suspect]
     Active Substance: DIAZEPAM
     Dosage: 5 MG, 4X/DAY

REACTIONS (1)
  - Completed suicide [Fatal]
